FAERS Safety Report 19705380 (Version 1)
Quarter: 2021Q3

REPORT INFORMATION
  Report Type: Spontaneous
  Country: US (occurrence: US)
  Receive Date: 20210816
  Receipt Date: 20210816
  Transmission Date: 20211014
  Serious: Yes (Hospitalization)
  Sender: FDA-Public Use
  Company Number: None

PATIENT
  Age: 54 Year
  Sex: Male
  Weight: 96.75 kg

DRUGS (6)
  1. LACTATED RINGER^S BOLUS [Concomitant]
     Dates: start: 20210805, end: 20210805
  2. DEXAMETHASONE. [Concomitant]
     Active Substance: DEXAMETHASONE
     Dates: start: 20210803, end: 20210812
  3. BENZONATATE (TESSALON PERLES) [Concomitant]
     Dates: start: 20210803, end: 20210810
  4. CODEINE?GUAIFENESIN [Concomitant]
     Active Substance: CODEINE PHOSPHATE\GUAIFENESIN
     Dates: start: 20210803, end: 20210811
  5. REGEN?COV [Suspect]
     Active Substance: CASIRIVIMAB\IMDEVIMAB
     Indication: COVID-19
     Dates: start: 20210805, end: 20210805
  6. BENADRYL [Concomitant]
     Active Substance: DIPHENHYDRAMINE HYDROCHLORIDE
     Dates: start: 20210805, end: 20210805

REACTIONS (2)
  - Ocular hyperaemia [None]
  - Eye pruritus [None]

NARRATIVE: CASE EVENT DATE: 20210805
